FAERS Safety Report 23945109 (Version 3)
Quarter: 2024Q3

REPORT INFORMATION
  Report Type: Spontaneous
  Country: PT (occurrence: PT)
  Receive Date: 20240606
  Receipt Date: 20240723
  Transmission Date: 20241017
  Serious: Yes (Other)
  Sender: AUROBINDO
  Company Number: PT-PIRAMAL PHARMA LIMITED-2024-PPL-000403

PATIENT
  Age: 20 Year
  Sex: Female

DRUGS (6)
  1. ROPIVACAINE HYDROCHLORIDE [Suspect]
     Active Substance: ROPIVACAINE HYDROCHLORIDE
     Indication: Epidural anaesthesia
     Dosage: 5 MILLILITER
     Route: 008
  2. ROPIVACAINE HYDROCHLORIDE [Suspect]
     Active Substance: ROPIVACAINE HYDROCHLORIDE
     Dosage: 10 MILLILITER
     Route: 008
  3. ROPIVACAINE HYDROCHLORIDE [Suspect]
     Active Substance: ROPIVACAINE HYDROCHLORIDE
     Dosage: 5 MILLILITER
     Route: 008
  4. ROPIVACAINE HYDROCHLORIDE [Suspect]
     Active Substance: ROPIVACAINE HYDROCHLORIDE
     Dosage: 10 MILLILITER
     Route: 008
  5. LEVOBUPIVACAINE [Suspect]
     Active Substance: LEVOBUPIVACAINE
     Indication: Analgesic therapy
     Dosage: 2.5 MILLIGRAM
     Route: 008
  6. SUFENTANIL [Suspect]
     Active Substance: SUFENTANIL
     Indication: Analgesic therapy
     Dosage: 2.5 MICROGRAM
     Route: 008

REACTIONS (2)
  - Horner^s syndrome [Recovered/Resolved]
  - Maternal exposure during delivery [Unknown]
